FAERS Safety Report 17422390 (Version 1)
Quarter: 2020Q1

REPORT INFORMATION
  Report Type: Spontaneous
  Country: JP (occurrence: JP)
  Receive Date: 20200214
  Receipt Date: 20200214
  Transmission Date: 20200409
  Serious: Yes (Hospitalization)
  Sender: FDA-Public Use
  Company Number: JP-BAXTER-2020BAX003030

PATIENT
  Sex: Male

DRUGS (1)
  1. ENDOXAN 1G [Suspect]
     Active Substance: CYCLOPHOSPHAMIDE
     Indication: DERMATOMYOSITIS
     Dosage: 1-7 COURSES, PULSE THERAPY
     Route: 042

REACTIONS (3)
  - Shock [Unknown]
  - Erythema [Unknown]
  - Pyrexia [Recovered/Resolved]
